FAERS Safety Report 4510659-6 (Version None)
Quarter: 2004Q4

REPORT INFORMATION
  Report Type: 
  Country: None (occurrence: None)
  Receive Date: 20041123
  Receipt Date: 20041110
  Transmission Date: 20050328
  Serious: Yes (Other)
  Sender: FDA-Public Use
  Company Number: 2004091657

PATIENT
  Age: 65 Year
  Sex: Female

DRUGS (1)
  1. TARTAR CONTROL LISTERINE MOUTHWASH (MENTHOL, METHYL SALICYLATE, EUCALY [Suspect]
     Indication: DENTAL DISORDER PROPHYLAXIS
     Dosage: 20 ML, PRN, THEN BID, ORAL TOPICAL
     Route: 061
     Dates: start: 20010101

REACTIONS (1)
  - DENTAL OPERATION [None]
